FAERS Safety Report 25307490 (Version 2)
Quarter: 2025Q2

REPORT INFORMATION
  Report Type: Spontaneous
  Country: SK (occurrence: SK)
  Receive Date: 20250513
  Receipt Date: 20250520
  Transmission Date: 20250716
  Serious: Yes (Hospitalization, Other)
  Sender: MYLAN
  Company Number: SK-ROCHE-2738519

PATIENT
  Age: 45 Year
  Sex: Male

DRUGS (48)
  1. DOXORUBICIN [Suspect]
     Active Substance: DOXORUBICIN
     Indication: Chemotherapy
  2. DOXORUBICIN [Suspect]
     Active Substance: DOXORUBICIN
     Indication: Neoplasm malignant
  3. DOXORUBICIN [Suspect]
     Active Substance: DOXORUBICIN
     Indication: Diffuse large B-cell lymphoma
  4. DOXORUBICIN [Suspect]
     Active Substance: DOXORUBICIN
  5. DOXORUBICIN [Suspect]
     Active Substance: DOXORUBICIN
  6. DOXORUBICIN [Suspect]
     Active Substance: DOXORUBICIN
  7. DOXORUBICIN [Suspect]
     Active Substance: DOXORUBICIN
  8. DOXORUBICIN [Suspect]
     Active Substance: DOXORUBICIN
  9. DOXORUBICIN [Suspect]
     Active Substance: DOXORUBICIN
  10. PREDNISONE [Suspect]
     Active Substance: PREDNISONE
     Indication: Neoplasm malignant
  11. PREDNISONE [Suspect]
     Active Substance: PREDNISONE
     Indication: Chemotherapy
  12. PREDNISONE [Suspect]
     Active Substance: PREDNISONE
     Indication: Diffuse large B-cell lymphoma
  13. PREDNISONE [Suspect]
     Active Substance: PREDNISONE
  14. PREDNISONE [Suspect]
     Active Substance: PREDNISONE
  15. PREDNISONE [Suspect]
     Active Substance: PREDNISONE
  16. PREDNISONE [Suspect]
     Active Substance: PREDNISONE
  17. PREDNISONE [Suspect]
     Active Substance: PREDNISONE
  18. PREDNISONE [Suspect]
     Active Substance: PREDNISONE
  19. MABTHERA [Suspect]
     Active Substance: RITUXIMAB
     Indication: Neoplasm malignant
  20. MABTHERA [Suspect]
     Active Substance: RITUXIMAB
     Indication: Chemotherapy
     Dosage: 375 MILLIGRAM, Q3W
     Dates: start: 20151122
  21. MABTHERA [Suspect]
     Active Substance: RITUXIMAB
     Indication: Diffuse large B-cell lymphoma
  22. MABTHERA [Suspect]
     Active Substance: RITUXIMAB
  23. MABTHERA [Suspect]
     Active Substance: RITUXIMAB
  24. MABTHERA [Suspect]
     Active Substance: RITUXIMAB
  25. MABTHERA [Suspect]
     Active Substance: RITUXIMAB
  26. MABTHERA [Suspect]
     Active Substance: RITUXIMAB
  27. MABTHERA [Suspect]
     Active Substance: RITUXIMAB
  28. CYCLOPHOSPHAMIDE [Suspect]
     Active Substance: CYCLOPHOSPHAMIDE
     Indication: Neoplasm malignant
  29. CYCLOPHOSPHAMIDE [Suspect]
     Active Substance: CYCLOPHOSPHAMIDE
     Indication: Chemotherapy
  30. CYCLOPHOSPHAMIDE [Suspect]
     Active Substance: CYCLOPHOSPHAMIDE
  31. CYCLOPHOSPHAMIDE [Suspect]
     Active Substance: CYCLOPHOSPHAMIDE
  32. CYCLOPHOSPHAMIDE [Suspect]
     Active Substance: CYCLOPHOSPHAMIDE
  33. CYCLOPHOSPHAMIDE [Suspect]
     Active Substance: CYCLOPHOSPHAMIDE
  34. CYCLOPHOSPHAMIDE [Suspect]
     Active Substance: CYCLOPHOSPHAMIDE
  35. CYCLOPHOSPHAMIDE [Suspect]
     Active Substance: CYCLOPHOSPHAMIDE
  36. CYCLOPHOSPHAMIDE [Suspect]
     Active Substance: CYCLOPHOSPHAMIDE
  37. VINCRISTINE SULFATE [Suspect]
     Active Substance: VINCRISTINE SULFATE
     Indication: Neoplasm malignant
  38. VINCRISTINE SULFATE [Suspect]
     Active Substance: VINCRISTINE SULFATE
     Indication: Chemotherapy
  39. VINCRISTINE SULFATE [Suspect]
     Active Substance: VINCRISTINE SULFATE
  40. VINCRISTINE SULFATE [Suspect]
     Active Substance: VINCRISTINE SULFATE
  41. VINCRISTINE SULFATE [Suspect]
     Active Substance: VINCRISTINE SULFATE
  42. VINCRISTINE SULFATE [Suspect]
     Active Substance: VINCRISTINE SULFATE
  43. VINCRISTINE SULFATE [Suspect]
     Active Substance: VINCRISTINE SULFATE
  44. VINCRISTINE SULFATE [Suspect]
     Active Substance: VINCRISTINE SULFATE
  45. VINCRISTINE SULFATE [Suspect]
     Active Substance: VINCRISTINE SULFATE
  46. FILGRASTIM [Concomitant]
     Active Substance: FILGRASTIM
     Dosage: UNK, QD (ON THE TENTH DAY
  47. FILGRASTIM [Concomitant]
     Active Substance: FILGRASTIM
     Dosage: UNK, QD (FILGRASTIM (5 DAYS, 1? DAILY) WAS THEN APPLIED FROM THE THIRD DAY OF STARTING IMMUNOCHEMOTHERAPY [AFTER THIRD CYCLE OF IMMUNOCHEMOTHERAPY] )
  48. PEGFILGRASTIM [Concomitant]
     Active Substance: PEGFILGRASTIM

REACTIONS (6)
  - Myalgia [Recovered/Resolved]
  - Arthralgia [Recovered/Resolved]
  - Neck pain [Recovered/Resolved]
  - Leukopenia [Recovered/Resolved]
  - Neutropenia [Recovered/Resolved]
  - Infection [Unknown]

NARRATIVE: CASE EVENT DATE: 20151130
